FAERS Safety Report 17973536 (Version 1)
Quarter: 2020Q3

REPORT INFORMATION
  Report Type: Spontaneous
  Country: US (occurrence: US)
  Receive Date: 20200701
  Receipt Date: 20200701
  Transmission Date: 20201103
  Serious: Yes (Hospitalization)
  Sender: FDA-Public Use
  Company Number: None

PATIENT
  Age: 69 Year
  Sex: Female

DRUGS (14)
  1. HYDROCO /APAP [Concomitant]
  2. PREDNISONE. [Concomitant]
     Active Substance: PREDNISONE
  3. EPINEPHRINE. [Concomitant]
     Active Substance: EPINEPHRINE
  4. TRAMADOL HCL [Concomitant]
     Active Substance: TRAMADOL HYDROCHLORIDE
  5. VENLAFAXINE [Concomitant]
     Active Substance: VENLAFAXINE HYDROCHLORIDE
  6. FOLIC ACID. [Concomitant]
     Active Substance: FOLIC ACID
  7. MELOXICAM. [Concomitant]
     Active Substance: MELOXICAM
  8. HYDROXYCHLOR [Concomitant]
     Active Substance: HYDROXYCHLOROQUINE
  9. METHOTREXATE. [Concomitant]
     Active Substance: METHOTREXATE
  10. SIMVASTATIN. [Concomitant]
     Active Substance: SIMVASTATIN
  11. HUMIRA [Suspect]
     Active Substance: ADALIMUMAB
     Indication: RHEUMATOID ARTHRITIS
     Dosage: 1 PEN QOWK SQ
     Route: 058
     Dates: start: 20180202
  12. PREGABALIN. [Concomitant]
     Active Substance: PREGABALIN
  13. NAPROXEN. [Concomitant]
     Active Substance: NAPROXEN
  14. OMEPRAZOLE. [Concomitant]
     Active Substance: OMEPRAZOLE

REACTIONS (1)
  - Spinal operation [None]

NARRATIVE: CASE EVENT DATE: 20200630
